FAERS Safety Report 10676181 (Version 2)
Quarter: 2015Q1

REPORT INFORMATION
  Report Type: Report from Study
  Country: US (occurrence: US)
  Receive Date: 20141226
  Receipt Date: 20150112
  Transmission Date: 20150720
  Serious: No
  Sender: FDA-Public Use
  Company Number: US-AMGEN-USASL2014099071

PATIENT
  Age: 54 Year
  Sex: Female
  Weight: 101.59 kg

DRUGS (4)
  1. METHOTREXATE [Concomitant]
     Active Substance: METHOTREXATE
     Dosage: 20 MG, QWK BY INJECTION ROUET AS DIRECTED FOR 84 DAYS
  2. ENBREL [Suspect]
     Active Substance: ETANERCEPT
     Indication: RHEUMATOID ARTHRITIS
     Dosage: 50 MG, QWK
     Route: 058
     Dates: start: 20140610, end: 20141101
  3. AMITRIPTYLINE                      /00002202/ [Concomitant]
     Dosage: 10 MG, 1/2 TO 1 TAB ABOUT 1 HOUR BEFORE BED FOR SLEEP/PAIN
  4. EPIPEN [Concomitant]
     Active Substance: EPINEPHRINE
     Dosage: 0.3MG/0.3ML (1:1,000) INJECTION, AUTO-INJECTOR TAKES 1 AUTO(S) AS NEEDED BY THE INJECTION ROUTE FOR

REACTIONS (5)
  - Peripheral swelling [Recovered/Resolved]
  - Fluid retention [Recovered/Resolved]
  - Injection site swelling [Recovered/Resolved]
  - Injection site urticaria [Recovered/Resolved]
  - Injection site pruritus [Recovered/Resolved]

NARRATIVE: CASE EVENT DATE: 2014
